FAERS Safety Report 4860997-2 (Version None)
Quarter: 2005Q4

REPORT INFORMATION
  Report Type: 
  Country: None (occurrence: None)
  Receive Date: 20051216
  Receipt Date: 20051206
  Transmission Date: 20060501
  Serious: Yes (Other)
  Sender: FDA-Public Use
  Company Number: DE200512000885

PATIENT
  Age: 26 Year
  Sex: Female

DRUGS (1)
  1. CYMBALTA [Suspect]
     Dosage: 60 MG, ORAL
     Route: 048
     Dates: start: 20050101

REACTIONS (6)
  - BLOOD PRESSURE DECREASED [None]
  - CARDIOVASCULAR DISORDER [None]
  - DIZZINESS [None]
  - NAUSEA [None]
  - TREATMENT NONCOMPLIANCE [None]
  - VOMITING [None]
